FAERS Safety Report 11718557 (Version 1)
Quarter: 2015Q4

REPORT INFORMATION
  Report Type: Spontaneous
  Country: US (occurrence: None)
  Receive Date: 20151109
  Receipt Date: 20151109
  Transmission Date: 20160304
  Serious: No
  Sender: FDA-Public Use
  Company Number: None

PATIENT
  Age: 55 Year
  Sex: Male

DRUGS (1)
  1. REBIF [Suspect]
     Active Substance: INTERFERON BETA-1A
     Indication: MULTIPLE SCLEROSIS
     Dosage: 3X PER WEEK
     Route: 058
     Dates: start: 20121219

REACTIONS (1)
  - Inappropriate schedule of drug administration [None]

NARRATIVE: CASE EVENT DATE: 20150511
